FAERS Safety Report 12873250 (Version 2)
Quarter: 2016Q4

REPORT INFORMATION
  Report Type: Spontaneous
  Country: US (occurrence: US)
  Receive Date: 20161021
  Receipt Date: 20161128
  Transmission Date: 20170207
  Serious: Yes (Hospitalization)
  Sender: FDA-Public Use
  Company Number: PHEH2016US027229

PATIENT
  Sex: Female
  Weight: 54 kg

DRUGS (1)
  1. AFINITOR [Suspect]
     Active Substance: EVEROLIMUS
     Indication: CARCINOID TUMOUR
     Dosage: 10 MG, QD
     Route: 048
     Dates: start: 20160923

REACTIONS (5)
  - Dermatitis acneiform [Unknown]
  - Pancreatitis [Recovered/Resolved]
  - Pain [Unknown]
  - Rash [Unknown]
  - Product use issue [Unknown]
